FAERS Safety Report 22634599 (Version 6)
Quarter: 2023Q4

REPORT INFORMATION
  Report Type: Spontaneous
  Country: US (occurrence: US)
  Receive Date: 20230623
  Receipt Date: 20231207
  Transmission Date: 20240109
  Serious: Yes (Hospitalization, Other)
  Sender: FDA-Public Use
  Company Number: US-PFIZER INC-202300226782

PATIENT
  Age: 74 Year
  Sex: Male
  Weight: 99.34 kg

DRUGS (1)
  1. SOMAVERT [Suspect]
     Active Substance: PEGVISOMANT
     Indication: Pituitary tumour
     Dosage: UNK, 2X/DAY (TWO SHOTS A DAY)

REACTIONS (7)
  - Sepsis [Unknown]
  - Macular degeneration [Recovering/Resolving]
  - Off label use [Unknown]
  - Weight fluctuation [Unknown]
  - Device difficult to use [Unknown]
  - Wrong technique in device usage process [Unknown]
  - Device defective [Unknown]
